FAERS Safety Report 14443762 (Version 1)
Quarter: 2018Q1

REPORT INFORMATION
  Report Type: Spontaneous
  Country: US (occurrence: US)
  Receive Date: 20180125
  Receipt Date: 20180125
  Transmission Date: 20180509
  Serious: Yes (Other)
  Sender: FDA-Public Use
  Company Number: None

PATIENT
  Sex: Female

DRUGS (1)
  1. IBRANCE [Suspect]
     Active Substance: PALBOCICLIB
     Indication: BREAST CANCER
     Dosage: 75MG  DAILY FOR 21 DAYS ON,  7 DAYS OFF        ORAL      ?
     Route: 048
     Dates: start: 20151223

REACTIONS (1)
  - Nausea [None]
